FAERS Safety Report 7277903-6 (Version None)
Quarter: 2011Q1

REPORT INFORMATION
  Report Type: 
  Country: None (occurrence: None)
  Receive Date: 20110207
  Receipt Date: 20110128
  Transmission Date: 20110831
  Serious: Yes (Hospitalization, Other)
  Sender: FDA-Public Use
  Company Number: US-JNJFOC-20101003908

PATIENT
  Sex: Female
  Weight: 77.11 kg

DRUGS (8)
  1. LEVAQUIN [Suspect]
     Indication: COUGH
     Route: 048
  2. LEVAQUIN [Suspect]
     Indication: BRONCHITIS
     Route: 048
  3. LEVAQUIN [Suspect]
     Indication: PNEUMONIA
     Route: 048
  4. PREDNISONE [Suspect]
     Indication: PNEUMONIA
     Route: 048
  5. LEVAQUIN [Suspect]
     Indication: LUNG INFECTION
     Route: 048
  6. PREDNISONE [Suspect]
     Indication: BRONCHITIS
     Route: 048
  7. PREDNISONE [Suspect]
     Indication: INFECTION
     Route: 048
  8. LEVAQUIN [Suspect]
     Indication: NASOPHARYNGITIS
     Route: 048

REACTIONS (4)
  - TENOSYNOVITIS STENOSANS [None]
  - LIGAMENT RUPTURE [None]
  - TENDON RUPTURE [None]
  - ROTATOR CUFF SYNDROME [None]
